FAERS Safety Report 6104676-2 (Version None)
Quarter: 2009Q1

REPORT INFORMATION
  Report Type: 
  Country: None (occurrence: None)
  Receive Date: 20090303
  Receipt Date: 20090216
  Transmission Date: 20090719
  Serious: Yes (Hospitalization, Other)
  Sender: FDA-Public Use
  Company Number: 2009AL000955

PATIENT

DRUGS (1)
  1. FEVERALL [Suspect]

REACTIONS (5)
  - ACCIDENTAL OVERDOSE [None]
  - CHOLESTASIS [None]
  - HEPATIC NECROSIS [None]
  - HEPATOCELLULAR INJURY [None]
  - INTENTIONAL OVERDOSE [None]
